FAERS Safety Report 24210213 (Version 1)
Quarter: 2024Q3

REPORT INFORMATION
  Report Type: Spontaneous
  Country: US (occurrence: None)
  Receive Date: 20240813
  Receipt Date: 20240813
  Transmission Date: 20241016
  Serious: Yes (Other)
  Sender: Public
  Company Number: None

PATIENT
  Age: 77 Year
  Sex: Male
  Weight: 76.5 kg

DRUGS (1)
  1. PAXLOVID [Suspect]
     Active Substance: NIRMATRELVIR\RITONAVIR
     Indication: COVID-19
     Dosage: OTHER QUANTITY : 1 BLISTER PACKS;?FREQUENCY : TWICE A DAY;?
     Route: 048
     Dates: start: 20240802, end: 20240803

REACTIONS (3)
  - Dysstasia [None]
  - Therapy cessation [None]
  - Muscular weakness [None]

NARRATIVE: CASE EVENT DATE: 20240803
